FAERS Safety Report 13682011 (Version 1)
Quarter: 2017Q2

REPORT INFORMATION
  Report Type: Report from Study
  Country: IE (occurrence: IE)
  Receive Date: 20170623
  Receipt Date: 20170623
  Transmission Date: 20170830
  Serious: Yes (Death, Hospitalization)
  Sender: FDA-Public Use
  Company Number: IE-PFIZER INC-2017269619

PATIENT
  Age: 78 Year
  Sex: Female
  Weight: 64.3 kg

DRUGS (5)
  1. PALBOCICLIB [Suspect]
     Active Substance: PALBOCICLIB
     Indication: BREAST CANCER METASTATIC
     Dosage: 125 MG, CYCLIC (3 WEEKS ON, 1 WEEK OFF)
     Route: 048
     Dates: start: 20170517, end: 20170606
  2. FASLODEX [Concomitant]
     Active Substance: FULVESTRANT
     Dosage: UNK
     Route: 030
     Dates: start: 20170517, end: 201706
  3. XARELTO [Concomitant]
     Active Substance: RIVAROXABAN
     Dosage: 1.5 MG, UNK
     Route: 048
     Dates: end: 20170606
  4. FASLODEX [Concomitant]
     Active Substance: FULVESTRANT
     Indication: BREAST CANCER METASTATIC
     Dosage: 250 UG X 2
     Route: 030
     Dates: start: 20161121
  5. DENOSUMAB [Concomitant]
     Active Substance: DENOSUMAB
     Indication: BREAST CANCER METASTATIC
     Dosage: 120 MG, UNK
     Route: 058
     Dates: start: 20160829, end: 201705

REACTIONS (6)
  - Pancytopenia [Fatal]
  - Liver function test abnormal [Fatal]
  - Fatigue [Unknown]
  - Neoplasm progression [Fatal]
  - Coma hepatic [Fatal]
  - Malaise [Unknown]

NARRATIVE: CASE EVENT DATE: 20170606
